FAERS Safety Report 25514844 (Version 1)
Quarter: 2025Q3

REPORT INFORMATION
  Report Type: Spontaneous
  Country: CN (occurrence: CN)
  Receive Date: 20250703
  Receipt Date: 20250703
  Transmission Date: 20251020
  Serious: Yes (Life-Threatening, Hospitalization, Other)
  Sender: MERCK SHARP & DOHME LLC
  Company Number: CN-009507513-2301150

PATIENT
  Age: 79 Year
  Sex: Male

DRUGS (1)
  1. CILASTATIN SODIUM\IMIPENEM [Suspect]
     Active Substance: CILASTATIN SODIUM\IMIPENEM
     Indication: Sepsis
     Route: 041
     Dates: start: 20250616, end: 20250624

REACTIONS (2)
  - Jaundice [Unknown]
  - Cholecystitis [Unknown]

NARRATIVE: CASE EVENT DATE: 20250618
